FAERS Safety Report 9729945 (Version 3)
Quarter: 2014Q1

REPORT INFORMATION
  Report Type: Spontaneous
  Country: US (occurrence: US)
  Receive Date: 20131204
  Receipt Date: 20140113
  Transmission Date: 20141002
  Serious: Yes (Hospitalization, Other)
  Sender: FDA-Public Use
  Company Number: US-INCYTE CORPORATION-2013IN001665

PATIENT
  Age: 76 Year
  Sex: Female
  Weight: 51.7 kg

DRUGS (12)
  1. JAKAFI [Suspect]
     Indication: MYELOFIBROSIS
     Dosage: 5 MG, UNK
     Route: 048
     Dates: start: 20120806
  2. JAKAFI [Suspect]
     Dosage: 7.5 MG, QOD
     Route: 048
     Dates: end: 20120906
  3. METOPROLOL [Concomitant]
     Dosage: 50 MG TABLET
  4. LEVOTHYROXINE [Concomitant]
     Dosage: 88 MCG TABLET
  5. FOLIC ACID [Concomitant]
     Dosage: 1 MG TABLET
  6. ALLOPURINOL [Concomitant]
     Dosage: 100 MG TABLET
  7. ELAVIL [Concomitant]
     Dosage: 25 MG TABLET
  8. TYLENOL [Concomitant]
  9. IPRATROPIUM [Concomitant]
  10. CHLORTHALIDONE [Concomitant]
     Dosage: 25 MG TABLET
  11. MECLIZINE                          /00072801/ [Concomitant]
     Dosage: 12.5 MG TABLET
  12. SIMVASTATIN [Concomitant]
     Dosage: 20 MG TABLET

REACTIONS (5)
  - Syncope [Unknown]
  - Fall [Unknown]
  - Pancytopenia [Unknown]
  - Splenomegaly [Unknown]
  - Medication error [Unknown]
